FAERS Safety Report 8419699-8 (Version None)
Quarter: 2012Q2

REPORT INFORMATION
  Report Type: 
  Country: None (occurrence: None)
  Receive Date: 20120607
  Receipt Date: 20120526
  Transmission Date: 20120825
  Serious: Yes (Other)
  Sender: FDA-Public Use
  Company Number: JP-ELI_LILLY_AND_COMPANY-JP201106001474

PATIENT
  Age: 69 Year
  Sex: Female

DRUGS (2)
  1. FORTEO [Suspect]
     Dosage: UNK
     Route: 058
     Dates: start: 20110513
  2. LYRICA [Concomitant]
     Route: 048

REACTIONS (5)
  - SCOLIOSIS SURGERY [None]
  - ARTHRITIS [None]
  - MUSCULOSKELETAL STIFFNESS [None]
  - DIZZINESS [None]
  - MUSCLE SPASMS [None]
